FAERS Safety Report 6825138-0 (Version None)
Quarter: 2010Q3

REPORT INFORMATION
  Report Type: 
  Country: None (occurrence: None)
  Receive Date: 20100708
  Receipt Date: 20061201
  Transmission Date: 20110219
  Serious: No
  Sender: FDA-Public Use
  Company Number: US-PFIZER INC-2006152391

PATIENT
  Sex: Female
  Weight: 69.4 kg

DRUGS (8)
  1. CHANTIX [Suspect]
     Dates: start: 20060101
  2. ETANERCEPT [Concomitant]
  3. METHOTREXATE [Concomitant]
  4. QUINAPRIL HYDROCHLORIDE [Concomitant]
  5. FOSAMAX [Concomitant]
  6. SPIRIVA [Concomitant]
     Route: 055
  7. ALBUTEROL [Concomitant]
     Route: 055
  8. ADVAIR DISKUS 100/50 [Concomitant]
     Route: 055

REACTIONS (5)
  - HEADACHE [None]
  - MALAISE [None]
  - NAUSEA [None]
  - SINUSITIS [None]
  - VOMITING [None]
